FAERS Safety Report 7089530-4 (Version None)
Quarter: 2010Q4

REPORT INFORMATION
  Report Type: 
  Country: None (occurrence: None)
  Receive Date: 20101108
  Receipt Date: 20101026
  Transmission Date: 20110411
  Serious: Yes (Hospitalization)
  Sender: FDA-Public Use
  Company Number: US-ELI_LILLY_AND_COMPANY-US201008006264

PATIENT
  Sex: Female

DRUGS (13)
  1. FORTEO [Suspect]
     Indication: OSTEOPOROSIS
     Dosage: 20 UG, DAILY (1/D)
     Route: 058
  2. FORTEO [Suspect]
     Dosage: 20 UG, DAILY (1/D)
  3. PREVACID [Concomitant]
  4. ZETIA [Concomitant]
  5. PAXIL [Concomitant]
     Dosage: 37.5 MG, UNK
  6. AMBIEN [Concomitant]
     Dosage: 5 MG, UNK
  7. RESTASIS [Concomitant]
     Indication: DRY EYE
  8. METFORMIN HCL [Concomitant]
  9. WELCHOL [Concomitant]
  10. CENTRUM SILVER [Concomitant]
  11. SLOW-FE [Concomitant]
  12. CALCIUM [Concomitant]
  13. VITAMIN D [Concomitant]

REACTIONS (14)
  - BACK DISORDER [None]
  - BACK PAIN [None]
  - BALANCE DISORDER [None]
  - BRADYPHRENIA [None]
  - FALL [None]
  - HAEMORRHAGIC DIATHESIS [None]
  - HERPES ZOSTER [None]
  - INCREASED TENDENCY TO BRUISE [None]
  - INJECTION SITE HAEMATOMA [None]
  - INSOMNIA [None]
  - MUSCLE SPASMS [None]
  - NERVE COMPRESSION [None]
  - RIB FRACTURE [None]
  - SKIN DISCOLOURATION [None]
